FAERS Safety Report 8457931-5 (Version None)
Quarter: 2012Q2

REPORT INFORMATION
  Report Type: 
  Country: None (occurrence: None)
  Receive Date: 20120622
  Receipt Date: 20120612
  Transmission Date: 20120825
  Serious: Yes (Hospitalization)
  Sender: FDA-Public Use
  Company Number: US-JNJFOC-20120519446

PATIENT
  Sex: Male
  Weight: 74 kg

DRUGS (5)
  1. ZYTIGA [Suspect]
     Indication: PROSTATE CANCER METASTATIC
     Route: 048
     Dates: start: 20120517
  2. CELEXA [Concomitant]
     Indication: DEPRESSION
     Route: 065
     Dates: start: 20110401
  3. PREDNISONE TAB [Concomitant]
     Indication: PROSTATE CANCER METASTATIC
     Route: 048
  4. OXYCONTIN [Concomitant]
     Indication: PAIN
     Route: 065
     Dates: start: 20120515
  5. ISOSORBIDE [Concomitant]
     Indication: CARDIAC DISORDER
     Route: 065
     Dates: start: 20110401

REACTIONS (2)
  - DEHYDRATION [None]
  - URINARY TRACT INFECTION [None]
